FAERS Safety Report 4452018-0 (Version None)
Quarter: 2004Q3

REPORT INFORMATION
  Report Type: 
  Country: None (occurrence: None)
  Receive Date: 20040916
  Receipt Date: 20040907
  Transmission Date: 20050211
  Serious: Yes (Other)
  Sender: FDA-Public Use
  Company Number: 002660

PATIENT
  Age: 57 Year
  Sex: Female

DRUGS (3)
  1. MEDROXYPROGESTERONE ACETATE [Suspect]
  2. CYCRIN [Suspect]
     Dates: start: 19970601, end: 19990201
  3. MEDROXYPROGESTERONE ACETATE [Suspect]
     Dates: start: 19980201, end: 20001201

REACTIONS (1)
  - BREAST CANCER [None]
